FAERS Safety Report 22140689 (Version 1)
Quarter: 2023Q1

REPORT INFORMATION
  Report Type: Spontaneous
  Country: US (occurrence: None)
  Receive Date: 20230323
  Receipt Date: 20230323
  Transmission Date: 20230418
  Serious: Yes (Death)
  Sender: FDA-Public Use
  Company Number: None

PATIENT
  Age: 74 Year
  Sex: Male

DRUGS (1)
  1. ZARXIO [Suspect]
     Active Substance: FILGRASTIM-SNDZ
     Dosage: OTHER QUANTITY/DOSE AMOUNT : 480MCG/0.8ML;?
     Route: 058

REACTIONS (2)
  - Myelodysplastic syndrome [None]
  - Disease progression [None]

NARRATIVE: CASE EVENT DATE: 20230323
